FAERS Safety Report 9193496 (Version 1)
Quarter: 2013Q1

REPORT INFORMATION
  Report Type: Spontaneous
  Country: US (occurrence: US)
  Receive Date: 20130327
  Receipt Date: 20130327
  Transmission Date: 20140127
  Serious: Yes (Hospitalization, Other)
  Sender: FDA-Public Use
  Company Number: US-PFIZER INC-AUR-APL-2011-01081

PATIENT
  Age: 33 Year
  Sex: Male

DRUGS (4)
  1. FLUOXETINE HCL [Suspect]
     Indication: ADJUSTMENT DISORDER WITH DEPRESSED MOOD
     Dosage: 20 MG, UNK
     Route: 048
  2. FLUOXETINE HCL [Suspect]
     Dosage: 80 MG, UNK
     Route: 048
  3. SERTRALINE HCL [Suspect]
     Indication: ADJUSTMENT DISORDER WITH DEPRESSED MOOD
     Dosage: 100 MG PER DAY
  4. DIAZEPAM [Suspect]
     Indication: ADJUSTMENT DISORDER WITH DEPRESSED MOOD
     Dosage: UNK

REACTIONS (10)
  - Serotonin syndrome [Recovering/Resolving]
  - Haematemesis [Unknown]
  - Affective disorder [Unknown]
  - Hallucination, auditory [Unknown]
  - Visual impairment [Unknown]
  - Disturbance in attention [Unknown]
  - Depression [Unknown]
  - Anxiety [Unknown]
  - Insomnia [Unknown]
  - Stress [Unknown]
